FAERS Safety Report 7149155-9 (Version None)
Quarter: 2010Q4

REPORT INFORMATION
  Report Type: 
  Country: None (occurrence: None)
  Receive Date: 20101209
  Receipt Date: 20101206
  Transmission Date: 20110411
  Serious: Yes (Other)
  Sender: FDA-Public Use
  Company Number: US-ROCHE-730855

PATIENT
  Sex: Female

DRUGS (20)
  1. PEGINTERFERON ALFA-2A [Suspect]
     Indication: HEPATITIS C
     Dosage: FORM; PRE FILLED SYRINGE
     Route: 042
     Dates: start: 20091008, end: 20101010
  2. RIBASPHERE [Suspect]
     Indication: HEPATITIS C
     Dosage: IN DIVIDED DOSES ^ RIBAPAK^ PAR
     Route: 048
     Dates: start: 20091008, end: 20101017
  3. SINGULAIR [Concomitant]
     Dosage: DRUG REPORTED AS SINGULAR
  4. ADVAIR [Concomitant]
  5. ALBUTEROL [Concomitant]
  6. FLONASE [Concomitant]
  7. TRIAMTERENE [Concomitant]
  8. HYDROCHLOROTHIAZIDE [Concomitant]
  9. LISINOPRIL [Concomitant]
  10. SIMVASTATIN [Concomitant]
  11. POTASSIUM CHLORIDE [Concomitant]
  12. OMEPRAZOLE [Concomitant]
  13. NEXIUM [Concomitant]
  14. AMBIEN CR [Concomitant]
  15. CYMBALTA [Concomitant]
  16. ABILIFY [Concomitant]
  17. PROVIGIL [Concomitant]
  18. REGLAN [Concomitant]
  19. BENTYL [Concomitant]
  20. MINERAL TAB [Concomitant]

REACTIONS (5)
  - ALOPECIA [None]
  - FUNGAL SKIN INFECTION [None]
  - PULMONARY HYPERTENSION [None]
  - SLEEP APNOEA SYNDROME [None]
  - TRICUSPID VALVE INCOMPETENCE [None]
